FAERS Safety Report 6310779-X (Version None)
Quarter: 2009Q3

REPORT INFORMATION
  Report Type: 
  Country: None (occurrence: None)
  Receive Date: 20090812
  Receipt Date: 20090804
  Transmission Date: 20100115
  Serious: Yes (Hospitalization)
  Sender: FDA-Public Use
  Company Number: GXKR2009US08862

PATIENT
  Age: 54 Year
  Sex: Male

DRUGS (6)
  1. PREDNISONE (NGX) (PREDNISONE) [Suspect]
     Indication: DEMYELINATING POLYNEUROPATHY
     Dosage: HIGH DOSE
  2. MYCOPHENOLATE MOFETIL [Suspect]
     Indication: DEMYELINATING POLYNEUROPATHY
     Dosage: HIGH DOSE
  3. WARFARIN SODIUM [Suspect]
     Indication: PROTEIN S DEFICIENCY
  4. IMMUNOGLOBULINS [Concomitant]
  5. ANTIBIOTICS (NO INGREDIENTS/SUBSTANCES) [Concomitant]
  6. ANTIFUNGALS (NO INGREDIENTS/SUBSTANCES) [Concomitant]

REACTIONS (7)
  - ASPERGILLOSIS [None]
  - CALCINOSIS [None]
  - CALCIPHYLAXIS [None]
  - CULTURE WOUND POSITIVE [None]
  - SKIN PLAQUE [None]
  - SKIN ULCER [None]
  - WOUND INFECTION PSEUDOMONAS [None]
